FAERS Safety Report 18119604 (Version 1)
Quarter: 2020Q3

REPORT INFORMATION
  Report Type: Spontaneous
  Country: US (occurrence: US)
  Receive Date: 20200806
  Receipt Date: 20200806
  Transmission Date: 20201103
  Serious: Yes (Life-Threatening, Hospitalization)
  Sender: FDA-Public Use
  Company Number: US-MYLANLABS-2020M1070085

PATIENT
  Age: 25 Year
  Sex: Female

DRUGS (18)
  1. NOREPINEPHRINE. [Suspect]
     Active Substance: NOREPINEPHRINE
     Indication: VASOPLEGIA SYNDROME
     Dosage: 2 MICROGRAM, QMINUTE
  2. CALCIUM GLUCONATE. [Suspect]
     Active Substance: CALCIUM GLUCONATE
     Indication: VASOPLEGIA SYNDROME
     Dosage: 30 MILLILITER, IV BOLUS AT 30ML 10 MIN FOR 3TIMES AT INTERVAL OF 20 MIN, FOLLOWED BY AT 1 ML/KG/H
     Route: 040
  3. GLUCAGON. [Suspect]
     Active Substance: GLUCAGON
     Indication: VASOPLEGIA SYNDROME
     Dosage: 5 MILLIGRAM, IV BOLUS OF GLUCAGON AT 5MG, FOLLOWED BY IV INFUSION OF GLUCAGON AT 5 MG/H
     Route: 040
  4. METHYLENE BLUE. [Suspect]
     Active Substance: METHYLENE BLUE
     Indication: VASOPLEGIA SYNDROME
     Dosage: 2 MILLIGRAM/KILOGRAM, OVER 30 MIN
     Route: 040
  5. POTASSIUM CHLORIDE. [Concomitant]
     Active Substance: POTASSIUM CHLORIDE
     Indication: BLOOD POTASSIUM ABNORMAL
     Dosage: ALONG WITH INSULIN
     Route: 042
  6. INSULIN GLARGINE [Suspect]
     Active Substance: INSULIN GLARGINE
     Indication: VASOPLEGIA SYNDROME
     Dosage: IV BOLUS OF INSULIN AT 1UNIT/KG FOLLOWED BY INFUSION AT 0.5 UNITS/KG/H TITRATED UP TO 5 UNITS/KG/H
     Route: 040
  7. PROMETHAZINE [Suspect]
     Active Substance: PROMETHAZINE HYDROCHLORIDE
     Indication: PRODUCT USED FOR UNKNOWN INDICATION
     Dosage: TOTAL OF 1.5 G
     Route: 048
  8. INSULIN GLARGINE [Suspect]
     Active Substance: INSULIN GLARGINE
     Dosage: IV INFUSION OF INSULIN AT 0.5 UNITS/KG/H TITRATED UP TO 5 UNITS/KG/H
     Route: 042
  9. PHENYLEPHRINE [Suspect]
     Active Substance: PHENYLEPHRINE HYDROCHLORIDE
     Dosage: 180 MILLIGRAM, QMINUTE, UP?TITRATED
  10. DILTIAZEM. [Suspect]
     Active Substance: DILTIAZEM
     Indication: PRODUCT USED FOR UNKNOWN INDICATION
     Dosage: 180 MILLIGRAM, SHE HAD INGESTED NINETY DILTIAZEM 180MG SUSTAINED?RELEASE TABLETS (TOTAL DOSE 16.2G)
     Route: 048
  11. NOREPINEPHRINE. [Suspect]
     Active Substance: NOREPINEPHRINE
     Dosage: 180 MILLIGRAM, QMINUTE, UP?TITRATED
  12. GLUCAGON. [Suspect]
     Active Substance: GLUCAGON
     Dosage: 5 MILLIGRAM, QH
     Route: 042
  13. PHENYLEPHRINE [Suspect]
     Active Substance: PHENYLEPHRINE HYDROCHLORIDE
     Indication: VASOPLEGIA SYNDROME
     Dosage: 20 MICROGRAM, QMINUTE
  14. TRAZODONE [Suspect]
     Active Substance: TRAZODONE HYDROCHLORIDE
     Indication: PRODUCT USED FOR UNKNOWN INDICATION
     Dosage: TOTAL OF 3 G
     Route: 048
  15. DEXTROSE. [Concomitant]
     Active Substance: DEXTROSE
     Indication: BLOOD GLUCOSE ABNORMAL
     Dosage: 10% INFUSION WITH INSULIN
     Route: 042
  16. DEXTROSE. [Concomitant]
     Active Substance: DEXTROSE
     Dosage: GLUCOSE 50% INTRAVENOUS PUSH WITH INSULIN
     Route: 042
  17. CALCIUM GLUCONATE. [Suspect]
     Active Substance: CALCIUM GLUCONATE
     Dosage: 1ML/KG/H
     Route: 042
  18. VASOPRESSIN. [Suspect]
     Active Substance: VASOPRESSIN
     Indication: VASOPLEGIA SYNDROME
     Dosage: 0.03 UNITS PER MIN

REACTIONS (9)
  - Vasoplegia syndrome [Recovered/Resolved]
  - Lactic acidosis [Recovered/Resolved]
  - Encephalopathy [Recovered/Resolved]
  - Intentional overdose [Recovered/Resolved]
  - Multiple organ dysfunction syndrome [Recovered/Resolved]
  - Suicide attempt [Recovered/Resolved]
  - Sinus tachycardia [Recovered/Resolved]
  - Electrocardiogram QT prolonged [Recovered/Resolved]
  - Drug ineffective [Unknown]
